FAERS Safety Report 23481657 (Version 2)
Quarter: 2024Q2

REPORT INFORMATION
  Report Type: Spontaneous
  Country: JP (occurrence: JP)
  Receive Date: 20240205
  Receipt Date: 20240627
  Transmission Date: 20240716
  Serious: Yes (Hospitalization, Other)
  Sender: FDA-Public Use
  Company Number: JP-UNITED THERAPEUTICS-UNT-2024-003334

PATIENT
  Age: 80 Year
  Sex: Male
  Weight: 57.6 kg

DRUGS (6)
  1. TYVASO [Suspect]
     Active Substance: TREPROSTINIL
     Indication: Pulmonary hypertension
     Dosage: 18 ?G, QID
     Dates: end: 202403
  2. MACITENTAN [Concomitant]
     Active Substance: MACITENTAN
     Indication: Pulmonary hypertension
     Dosage: 10 MG, QD
  3. SELEXIPAG [Concomitant]
     Active Substance: SELEXIPAG
     Indication: Pulmonary hypertension
     Dosage: 0.4 MG, QD
  4. SELEXIPAG [Concomitant]
     Active Substance: SELEXIPAG
     Dosage: 0.8 MG, QD
  5. RIOCIGUAT [Concomitant]
     Active Substance: RIOCIGUAT
     Indication: Pulmonary hypertension
     Dosage: 3 MG, QD
  6. GEFITINIB [Concomitant]
     Active Substance: GEFITINIB
     Indication: Product used for unknown indication
     Dosage: UNK

REACTIONS (5)
  - Pneumonia aspiration [Recovering/Resolving]
  - Pulmonary hypertension [Unknown]
  - PO2 decreased [Unknown]
  - Alveolar oxygen partial pressure abnormal [Unknown]
  - Therapeutic response decreased [Unknown]

NARRATIVE: CASE EVENT DATE: 20240301
